FAERS Safety Report 5364928-0 (Version None)
Quarter: 2007Q2

REPORT INFORMATION
  Report Type: 
  Country: None (occurrence: None)
  Receive Date: 20070621
  Receipt Date: 20070612
  Transmission Date: 20071010
  Serious: Yes (Hospitalization, Other)
  Sender: FDA-Public Use
  Company Number: US-AMGEN-KDL216564

PATIENT
  Sex: Male
  Weight: 49.9 kg

DRUGS (15)
  1. EPOGEN [Suspect]
     Indication: DIALYSIS
     Route: 042
     Dates: start: 20020509
  2. ATENOLOL [Concomitant]
     Route: 048
  3. VASOTEC [Concomitant]
     Route: 048
  4. PREVACID [Concomitant]
     Route: 048
  5. ZYRTEC [Concomitant]
     Route: 048
  6. RENAGEL [Concomitant]
  7. PHOSLO [Concomitant]
     Route: 048
  8. TYLENOL W/ CODEINE NO. 3 [Concomitant]
     Route: 048
  9. NORVASC [Concomitant]
     Route: 048
  10. INDOMETHACIN [Concomitant]
     Route: 048
  11. FOSAMAX [Concomitant]
     Route: 048
  12. NEPHRO-VITE [Concomitant]
     Route: 048
  13. COLCHICINE [Concomitant]
     Route: 048
  14. VIOXX [Concomitant]
     Route: 048
  15. HECTORAL [Concomitant]
     Route: 048

REACTIONS (6)
  - CHOLECYSTITIS [None]
  - COUGH [None]
  - HAEMORRHAGE [None]
  - MARROW HYPERPLASIA [None]
  - MUSCULOSKELETAL PAIN [None]
  - THERAPEUTIC RESPONSE DECREASED [None]
